FAERS Safety Report 5026603-1 (Version None)
Quarter: 2006Q2

REPORT INFORMATION
  Report Type: 
  Country: None (occurrence: None)
  Receive Date: 20060613
  Receipt Date: 20060613
  Transmission Date: 20061013
  Serious: Yes (Hospitalization)
  Sender: FDA-Public Use
  Company Number: None

PATIENT
  Sex: Male
  Weight: 79.8331 kg

DRUGS (15)
  1. BEVACIZUMAB  5MG/ KG, GENENTECH [Suspect]
     Indication: ENDOCRINE PANCREATIC DISORDER
     Dosage: 400 MG QS  Q2WEEKS  IV
     Route: 042
     Dates: start: 20060502, end: 20060530
  2. BEVACIZUMAB  5MG/ KG, GENENTECH [Suspect]
     Indication: NEOPLASM
     Dosage: 400 MG QS  Q2WEEKS  IV
     Route: 042
     Dates: start: 20060502, end: 20060530
  3. DEXAMETHASONE/LORAZEPAM [Suspect]
     Indication: ENDOCRINE PANCREATIC DISORDER
     Dosage: 20 MG/1MG  Q2WEEKS  IV/PO
     Route: 048
     Dates: start: 20060502, end: 20060530
  4. DEXAMETHASONE/LORAZEPAM [Suspect]
     Indication: NEOPLASM
     Dosage: 20 MG/1MG  Q2WEEKS  IV/PO
     Route: 048
     Dates: start: 20060502, end: 20060530
  5. GRANISETRON 10 MCG/KG [Suspect]
     Indication: ENDOCRINE PANCREATIC DISORDER
     Dosage: 800 MCG  Q2WEEKS  IV
     Route: 042
     Dates: start: 20060502, end: 20060530
  6. GRANISETRON 10 MCG/KG [Suspect]
     Indication: NEOPLASM
     Dosage: 800 MCG  Q2WEEKS  IV
     Route: 042
     Dates: start: 20060502, end: 20060530
  7. OXALIPLATIN  85 MG/M2, SANOFI-SYNTHELABO [Suspect]
     Indication: ENDOCRINE PANCREATIC DISORDER
     Dosage: 170 MG  Q2WEEKS IV
     Route: 042
     Dates: start: 20060502, end: 20060530
  8. OXALIPLATIN  85 MG/M2, SANOFI-SYNTHELABO [Suspect]
     Indication: NEOPLASM
     Dosage: 170 MG  Q2WEEKS IV
     Route: 042
     Dates: start: 20060502, end: 20060530
  9. LEUCOVORIN CALCIUM [Suspect]
     Indication: ENDOCRINE PANCREATIC DISORDER
     Dosage: 400 MG Q2WEEKS  IV
     Route: 042
     Dates: start: 20060502, end: 20060530
  10. LEUCOVORIN CALCIUM [Suspect]
     Indication: NEOPLASM
     Dosage: 400 MG Q2WEEKS  IV
     Route: 042
     Dates: start: 20060502, end: 20060530
  11. FLUOROURACIL [Suspect]
     Indication: ENDOCRINE PANCREATIC DISORDER
     Dosage: 800 MG + 2400 MG Q2WEEKS IV
     Route: 042
     Dates: start: 20060502, end: 20060530
  12. FLUOROURACIL [Suspect]
     Indication: NEOPLASM
     Dosage: 800 MG + 2400 MG Q2WEEKS IV
     Route: 042
     Dates: start: 20060502, end: 20060530
  13. TYLENOL (CAPLET) [Concomitant]
  14. IMODIUM [Concomitant]
  15. ATIVAN [Concomitant]

REACTIONS (1)
  - PYREXIA [None]
